FAERS Safety Report 12291591 (Version 1)
Quarter: 2016Q2

REPORT INFORMATION
  Report Type: Report from Study
  Country: US (occurrence: US)
  Receive Date: 20160421
  Receipt Date: 20160421
  Transmission Date: 20160815
  Serious: No
  Sender: FDA-Public Use
  Company Number: US-AMGEN-USASL2016026389

PATIENT
  Age: 52 Year
  Sex: Male

DRUGS (3)
  1. REPATHA [Suspect]
     Active Substance: EVOLOCUMAB
     Indication: HYPERCHOLESTEROLAEMIA
     Dosage: 140 MG, Q2WK
     Route: 065
     Dates: start: 20151223
  2. REPATHA [Suspect]
     Active Substance: EVOLOCUMAB
     Indication: DRUG INTOLERANCE
  3. LIVALO [Suspect]
     Active Substance: PITAVASTATIN CALCIUM
     Indication: PRODUCT USED FOR UNKNOWN INDICATION
     Route: 065

REACTIONS (10)
  - Mobility decreased [Unknown]
  - Adverse event [Unknown]
  - Musculoskeletal pain [Unknown]
  - Pain [Unknown]
  - Insomnia [Unknown]
  - Asthenia [Unknown]
  - Bladder disorder [Unknown]
  - Pain in extremity [Unknown]
  - Dysgeusia [Unknown]
  - Arthralgia [Unknown]
